FAERS Safety Report 7076688-6 (Version None)
Quarter: 2010Q4

REPORT INFORMATION
  Report Type: 
  Country: None (occurrence: None)
  Receive Date: 20101101
  Receipt Date: 20101027
  Transmission Date: 20110411
  Serious: No
  Sender: FDA-Public Use
  Company Number: US-PFIZER INC-2010114403

PATIENT
  Sex: Female
  Weight: 65.3 kg

DRUGS (12)
  1. XALATAN [Suspect]
     Indication: GLAUCOMA
     Dosage: 1 GTT, 1X/DAY
  2. TIKOSYN [Concomitant]
     Dosage: 200 I?G, 3X/DAY
  3. SYNTHROID [Concomitant]
     Dosage: 100 MG, DAILY
  4. DIGOXIN [Concomitant]
     Dosage: 125 MG, UNK
  5. POTASSIUM [Concomitant]
     Dosage: 100 MG, 2X/DAY
  6. FUROSEMIDE [Concomitant]
     Dosage: 20 MG, 2X/DAY
  7. COUMADIN [Concomitant]
     Dosage: 3.5 MG, DAILY
  8. ASPIRIN [Concomitant]
     Dosage: 81 MG, DAILY
  9. SPIRONOLACTONE [Concomitant]
     Dosage: 12.5 MG, 2X/DAY
  10. NUROMAX [Concomitant]
     Dosage: 128 UNK, AS NEEDED
  11. METOLAZONE [Concomitant]
     Dosage: 225 MG, DAILY
  12. PREVACID [Concomitant]
     Indication: GASTRIC DISORDER
     Dosage: 15 MG, UNK

REACTIONS (1)
  - ABDOMINAL DISCOMFORT [None]
